FAERS Safety Report 20418511 (Version 3)
Quarter: 2022Q1

REPORT INFORMATION
  Report Type: Spontaneous
  Country: US (occurrence: US)
  Receive Date: 20220202
  Receipt Date: 20220303
  Transmission Date: 20220423
  Serious: Yes (Hospitalization, Other)
  Sender: FDA-Public Use
  Company Number: US-PFIZER INC-202200159862

PATIENT
  Age: 67 Year
  Sex: Female
  Weight: 88.45 kg

DRUGS (7)
  1. PAXLOVID [Suspect]
     Active Substance: NIRMATRELVIR\RITONAVIR
     Indication: COVID-19
     Dosage: UNK
     Dates: start: 20220119
  2. TAMSULOSIN [Suspect]
     Active Substance: TAMSULOSIN
     Indication: Urinary hesitation
  3. REMDESIVIR [Suspect]
     Active Substance: REMDESIVIR
     Dosage: UNK
  4. SYNTHROID [Concomitant]
     Active Substance: LEVOTHYROXINE SODIUM
  5. VITAMIN C [Concomitant]
     Active Substance: ASCORBIC ACID
  6. CHOLECALCIFEROL [Concomitant]
     Active Substance: CHOLECALCIFEROL
  7. CITALOPRAM [Concomitant]
     Active Substance: CITALOPRAM HYDROBROMIDE

REACTIONS (2)
  - Blood pressure decreased [Unknown]
  - Syncope [Unknown]

NARRATIVE: CASE EVENT DATE: 20220101
